FAERS Safety Report 9242487 (Version 1)
Quarter: 2013Q2

REPORT INFORMATION
  Report Type: Spontaneous
  Country: US (occurrence: US)
  Receive Date: 20130419
  Receipt Date: 20130419
  Transmission Date: 20140414
  Serious: Yes (Hospitalization, Other)
  Sender: FDA-Public Use
  Company Number: US-BRISTOL-MYERS SQUIBB COMPANY-18771576

PATIENT
  Age: 70 Year
  Sex: Female
  Weight: 46.71 kg

DRUGS (3)
  1. COUMADIN [Suspect]
     Indication: HEART VALVE REPLACEMENT
     Dosage: THEN THE OTHER DAYS TAKING 5 MG
     Dates: start: 1991
  2. SIMVASTATIN [Concomitant]
  3. LORAZEPAM [Concomitant]

REACTIONS (10)
  - Cerebrovascular accident [Unknown]
  - Endocarditis bacterial [Unknown]
  - Fatigue [Unknown]
  - Faeces pale [Unknown]
  - Local swelling [Unknown]
  - Thirst [Unknown]
  - Dry skin [Unknown]
  - Decreased appetite [Unknown]
  - Dental caries [Unknown]
  - Weight decreased [Unknown]
